FAERS Safety Report 9613708 (Version 1)
Quarter: 2013Q4

REPORT INFORMATION
  Report Type: Spontaneous
  Country: FR (occurrence: FR)
  Receive Date: 20131010
  Receipt Date: 20131010
  Transmission Date: 20140711
  Serious: Yes (Hospitalization)
  Sender: FDA-Public Use
  Company Number: FR-ROCHE-1286839

PATIENT
  Age: 80 Year
  Sex: Female

DRUGS (9)
  1. LUCENTIS [Suspect]
     Indication: AGE-RELATED MACULAR DEGENERATION
     Dosage: 10MG/ML
     Route: 050
     Dates: start: 201209
  2. TRIATEC [Suspect]
     Indication: HYPERTENSION
     Route: 048
     Dates: start: 20130530, end: 201307
  3. TRIATEC [Suspect]
     Route: 048
     Dates: start: 201307, end: 20130727
  4. HYDREA [Suspect]
     Indication: PRODUCT USED FOR UNKNOWN INDICATION
     Route: 065
     Dates: start: 201210, end: 20130527
  5. HYDREA [Suspect]
     Route: 065
     Dates: start: 20130527, end: 20130727
  6. LOXEN [Concomitant]
     Route: 065
     Dates: start: 20130503, end: 20130530
  7. KARDEGIC [Concomitant]
  8. XATRAL [Concomitant]
  9. APROVEL [Concomitant]
     Route: 065
     Dates: start: 20130727, end: 20130827

REACTIONS (2)
  - Rash maculo-papular [Recovering/Resolving]
  - Pruritus generalised [Recovering/Resolving]
